FAERS Safety Report 7802030-6 (Version None)
Quarter: 2011Q4

REPORT INFORMATION
  Report Type: 
  Country: None (occurrence: None)
  Receive Date: 20111007
  Receipt Date: 20111006
  Transmission Date: 20120403
  Serious: Yes (Death)
  Sender: FDA-Public Use
  Company Number: PHFR2010GB00804

PATIENT
  Sex: Male

DRUGS (2)
  1. ANALGESICS [Suspect]
     Indication: BACK PAIN
  2. CLOZAPINE [Suspect]
     Indication: SCHIZOPHRENIA
     Route: 048
     Dates: start: 20100222

REACTIONS (2)
  - TOXICITY TO VARIOUS AGENTS [None]
  - BACK PAIN [None]
